FAERS Safety Report 4317886-1 (Version None)
Quarter: 2004Q1

REPORT INFORMATION
  Report Type: 
  Country: None (occurrence: None)
  Receive Date: 20040316
  Receipt Date: 20040309
  Transmission Date: 20041129
  Serious: Yes (Other)
  Sender: FDA-Public Use
  Company Number: WAES 0403GBR00103

PATIENT
  Age: 67 Year
  Sex: Female

DRUGS (19)
  1. ACETAMINOPHEN [Concomitant]
  2. ASPIRIN [Concomitant]
  3. BUTYLSCOPOLAMINE BROMIDE [Concomitant]
  4. DANTHRON AND POLOXAMER 188 [Concomitant]
  5. ENALAPRIL MALEATE [Concomitant]
  6. EXEMESTANE [Concomitant]
  7. GABAPENTIN [Concomitant]
  8. INSULIN, BIPHASIC ISOPHANE [INJECTION] [Concomitant]
  9. ISOSORBIDE MONONITRATE [Concomitant]
  10. LANSOPRAZOLE [Concomitant]
  11. MORPHINE SULFATE [Concomitant]
  12. OXYCODONE [Concomitant]
  13. OXYCODONE HYDROCHLORIDE [Concomitant]
  14. POLYETHYLENE GLYCOL 3350 AND POTASSIUM CHLORIDE AND SODIUM BICARBONATE [Concomitant]
  15. VIOXX [Suspect]
     Indication: ARTHRALGIA
     Route: 048
     Dates: start: 20031101, end: 20040202
  16. VIOXX [Suspect]
     Indication: METASTASES TO BONE
     Route: 048
     Dates: start: 20031101, end: 20040202
  17. SENNA [Concomitant]
  18. TRAMADOL HYDROCHLORIDE [Concomitant]
  19. VERAPAMIL [Concomitant]

REACTIONS (2)
  - MOUTH ULCERATION [None]
  - RASH GENERALISED [None]
